FAERS Safety Report 5244920-7 (Version None)
Quarter: 2007Q1

REPORT INFORMATION
  Report Type: 
  Country: None (occurrence: None)
  Receive Date: 20070221
  Receipt Date: 20070221
  Transmission Date: 20070707
  Serious: Yes (Other)
  Sender: FDA-Public Use
  Company Number: None

PATIENT
  Sex: Female
  Weight: 48.0813 kg

DRUGS (5)
  1. GABAPENTIN [Suspect]
     Indication: INTERVERTEBRAL DISC PROTRUSION
     Dosage: 600 MG QID PO
     Route: 048
     Dates: start: 20070106, end: 20070112
  2. GABAPENTIN [Suspect]
     Indication: NEURALGIA
     Dosage: 600 MG QID PO
     Route: 048
     Dates: start: 20070106, end: 20070112
  3. ROBAXIN [Concomitant]
  4. NORCO [Concomitant]
  5. PROPRANOLOL [Concomitant]

REACTIONS (8)
  - CONDITION AGGRAVATED [None]
  - DRUG INEFFECTIVE [None]
  - HEART RATE IRREGULAR [None]
  - NEURALGIA [None]
  - PAIN IN EXTREMITY [None]
  - PALPITATIONS [None]
  - PHARMACEUTICAL PRODUCT COMPLAINT [None]
  - SOMNOLENCE [None]
